FAERS Safety Report 5397778-X (Version None)
Quarter: 2007Q3

REPORT INFORMATION
  Report Type: 
  Country: None (occurrence: None)
  Receive Date: 20070726
  Receipt Date: 20070718
  Transmission Date: 20080115
  Serious: Yes (Hospitalization, Other)
  Sender: FDA-Public Use
  Company Number: B0480544A

PATIENT
  Age: 31 Year
  Sex: Female

DRUGS (2)
  1. COMBIVIR [Suspect]
     Indication: DRUG USE FOR UNKNOWN INDICATION
     Route: 048
     Dates: start: 20061204, end: 20070102
  2. VIRAMUNE [Suspect]
     Indication: DRUG USE FOR UNKNOWN INDICATION
     Route: 065
     Dates: start: 20061207, end: 20061229

REACTIONS (4)
  - BLISTER [None]
  - MOUTH ULCERATION [None]
  - SKIN REACTION [None]
  - STEVENS-JOHNSON SYNDROME [None]
